FAERS Safety Report 21196596 (Version 1)
Quarter: 2022Q3

REPORT INFORMATION
  Report Type: Spontaneous
  Country: TR (occurrence: TR)
  Receive Date: 20220810
  Receipt Date: 20220810
  Transmission Date: 20221027
  Serious: Yes (Other)
  Sender: FDA-Public Use
  Company Number: TR-NOVARTISPH-NVSC2022TR177825

PATIENT
  Age: 21 Year
  Sex: Male

DRUGS (3)
  1. VOLTAREN [Suspect]
     Active Substance: DICLOFENAC SODIUM
     Indication: Groin pain
     Dosage: UNK, QD
     Route: 065
  2. VOLTAREN [Suspect]
     Active Substance: DICLOFENAC SODIUM
     Dosage: UNK, BID (FOR 5 MONTHS)
     Route: 065
  3. VOLTAREN [Suspect]
     Active Substance: DICLOFENAC SODIUM
     Dosage: UNK, BID (REPORTED AS YESTERDAY ONCE IN THE MORNING AND IN THE EVENING)
     Route: 065

REACTIONS (11)
  - Rectal haemorrhage [Unknown]
  - Enteritis infectious [Unknown]
  - Diarrhoea [Unknown]
  - Anal haemorrhage [Unknown]
  - Arthritis [Unknown]
  - C-reactive protein increased [Unknown]
  - Condition aggravated [Unknown]
  - Arthralgia [Unknown]
  - Anal fissure [Unknown]
  - Rectal fissure [Unknown]
  - Drug ineffective [Unknown]
